FAERS Safety Report 5638632-5 (Version None)
Quarter: 2008Q1

REPORT INFORMATION
  Report Type: 
  Country: None (occurrence: None)
  Receive Date: 20080226
  Receipt Date: 20071022
  Transmission Date: 20080703
  Serious: No
  Sender: FDA-Public Use
  Company Number: A0665298A

PATIENT
  Age: 31 Year
  Sex: Male

DRUGS (4)
  1. IMITREX [Suspect]
     Indication: MIGRAINE
     Dosage: 1INJ AS REQUIRED
     Route: 058
     Dates: start: 20050101
  2. IMITREX [Suspect]
     Dosage: 100MG AS REQUIRED
     Route: 048
     Dates: start: 20000101
  3. ABILIFY [Concomitant]
  4. WELLBUTRIN SR [Concomitant]

REACTIONS (4)
  - CHEST DISCOMFORT [None]
  - DRUG INEFFECTIVE [None]
  - FLUSHING [None]
  - PHARMACEUTICAL PRODUCT COMPLAINT [None]
